FAERS Safety Report 19604069 (Version 4)
Quarter: 2021Q3

REPORT INFORMATION
  Report Type: Spontaneous
  Country: PT (occurrence: PT)
  Receive Date: 20210723
  Receipt Date: 20210811
  Transmission Date: 20211014
  Serious: Yes (Hospitalization, Other)
  Sender: FDA-Public Use
  Company Number: PT-MYLANLABS-2021M1043739

PATIENT
  Age: 53 Year
  Sex: Female

DRUGS (7)
  1. INFLIXIMAB [Suspect]
     Active Substance: INFLIXIMAB
     Indication: ENTEROPATHIC SPONDYLITIS
     Dosage: UNK
     Route: 065
  2. DEFLAZACORT [Concomitant]
     Active Substance: DEFLAZACORT
     Dosage: 15 MILLIGRAM, QD
  3. CELECOXIB. [Concomitant]
     Active Substance: CELECOXIB
     Dosage: 100 MILLIGRAM, QD
  4. ADALIMUMAB [Suspect]
     Active Substance: ADALIMUMAB
     Indication: ENTEROPATHIC SPONDYLITIS
  5. ADALIMUMAB [Suspect]
     Active Substance: ADALIMUMAB
     Indication: SPONDYLITIS
     Dosage: UNK
     Route: 065
  6. SULFASALAZINE. [Concomitant]
     Active Substance: SULFASALAZINE
     Indication: PRODUCT USED FOR UNKNOWN INDICATION
     Dosage: 2 GRAM, QD
     Route: 065
  7. REMICADE [Suspect]
     Active Substance: INFLIXIMAB
     Indication: ENTEROPATHIC SPONDYLITIS
     Dosage: UNK
     Route: 042

REACTIONS (13)
  - Sinusitis [Unknown]
  - Antineutrophil cytoplasmic antibody positive [Unknown]
  - Malaise [Unknown]
  - Microcytic anaemia [Recovered/Resolved]
  - Off label use [Unknown]
  - Granulomatosis with polyangiitis [Recovering/Resolving]
  - Glomerulonephritis rapidly progressive [Unknown]
  - Psoriasis [Unknown]
  - Paradoxical psoriasis [Unknown]
  - Decreased appetite [Unknown]
  - Tubulointerstitial nephritis [Unknown]
  - Proteinuria [Unknown]
  - Product use in unapproved indication [Unknown]
